FAERS Safety Report 16689550 (Version 3)
Quarter: 2019Q3

REPORT INFORMATION
  Report Type: Spontaneous
  Country: US (occurrence: US)
  Receive Date: 20190809
  Receipt Date: 20190822
  Transmission Date: 20191004
  Serious: Yes (Other)
  Sender: FDA-Public Use
  Company Number: US-SA-2019SA215276

PATIENT
  Age: 83 Year
  Sex: Female

DRUGS (1)
  1. TOUJEO [Suspect]
     Active Substance: INSULIN GLARGINE
     Indication: TYPE 2 DIABETES MELLITUS
     Dosage: 20-22 UNITS TWICE DAILY
     Route: 065

REACTIONS (4)
  - Inappropriate schedule of product administration [Unknown]
  - Blood glucose increased [Unknown]
  - Therapeutic response decreased [Unknown]
  - Diabetes mellitus inadequate control [Unknown]
